FAERS Safety Report 8411382-8 (Version None)
Quarter: 2012Q2

REPORT INFORMATION
  Report Type: 
  Country: None (occurrence: None)
  Receive Date: 20120605
  Receipt Date: 20120522
  Transmission Date: 20120825
  Serious: Yes (Other)
  Sender: FDA-Public Use
  Company Number: GB-TEVA-327322ISR

PATIENT
  Age: 81 Year
  Sex: Female
  Weight: 81 kg

DRUGS (14)
  1. ATENOLOL [Concomitant]
     Indication: SUPRAVENTRICULAR TACHYCARDIA
     Dosage: 50 MILLIGRAM;
     Dates: start: 20111115
  2. LISINOPRIL [Concomitant]
     Dates: start: 20111115
  3. DOXAZOSIN MESYLATE [Concomitant]
     Dates: start: 20111115
  4. SIMVASTATIN [Concomitant]
     Dates: start: 20111115
  5. ALLOPURINOL [Concomitant]
     Dates: start: 20111115
  6. QVAR 40 [Concomitant]
     Dates: start: 20111115, end: 20111213
  7. AMOXICILLIN AND CLAVULANATE POTASSIUM [Concomitant]
     Dates: start: 20111229, end: 20120112
  8. ALBUTEROL [Concomitant]
     Dates: start: 20111115, end: 20111213
  9. CLARITHROMYCIN [Suspect]
     Indication: LOWER RESPIRATORY TRACT INFECTION
     Dosage: 250 MILLIGRAM;
     Dates: start: 20120224
  10. LERCANIDIPINE [Suspect]
     Indication: HYPERTENSION
     Dosage: 20 MILLIGRAM;
     Dates: start: 20111115
  11. ALBUTEROL [Concomitant]
     Dates: start: 20120215
  12. AMOXICILLIN AND CLAVULANATE POTASSIUM [Concomitant]
     Dates: start: 20120224
  13. QVAR 40 [Concomitant]
     Dates: start: 20120215
  14. ASPIRIN [Concomitant]
     Dates: start: 20120224

REACTIONS (5)
  - ATRIAL FIBRILLATION [None]
  - HYPOTENSION [None]
  - DRUG INTERACTION [None]
  - BLOOD PRESSURE DECREASED [None]
  - DIZZINESS [None]
